FAERS Safety Report 9487075 (Version 3)
Quarter: 2013Q3

REPORT INFORMATION
  Report Type: Spontaneous
  Country: US (occurrence: US)
  Receive Date: 20130829
  Receipt Date: 20130906
  Transmission Date: 20140515
  Serious: No
  Sender: FDA-Public Use
  Company Number: US-BAYER-2013-095872

PATIENT
  Sex: Female

DRUGS (1)
  1. ESTRADIOL HEMIHYDRATE (6.5) [Suspect]
     Dosage: 0.05 MG/D, CONT
     Route: 062

REACTIONS (2)
  - Drug ineffective [None]
  - Product quality issue [None]
